FAERS Safety Report 17545672 (Version 2)
Quarter: 2022Q4

REPORT INFORMATION
  Report Type: Spontaneous
  Country: JP (occurrence: JP)
  Receive Date: 20200316
  Receipt Date: 20221111
  Transmission Date: 20230112
  Serious: Yes (Other)
  Sender: FDA-Public Use
  Company Number: JP-ELI_LILLY_AND_COMPANY-JP202003001594

PATIENT
  Age: 64 Year
  Sex: Male

DRUGS (2)
  1. CYRAMZA [Suspect]
     Active Substance: RAMUCIRUMAB
     Indication: Gastric cancer recurrent
     Dosage: UNK
     Route: 042
     Dates: start: 201811
  2. PACLITAXEL [Concomitant]
     Active Substance: PACLITAXEL
     Indication: Gastric cancer recurrent
     Dosage: UNK
     Route: 042
     Dates: start: 201811

REACTIONS (7)
  - Oropharyngeal fistula [Recovered/Resolved]
  - Oropharyngeal fistula [Recovered/Resolved]
  - Impaired healing [Recovered/Resolved]
  - Underweight [Unknown]
  - Anaemia [Unknown]
  - Hypoalbuminaemia [Unknown]
  - Hypothyroidism [Unknown]

NARRATIVE: CASE EVENT DATE: 20190101
